FAERS Safety Report 6502458-0 (Version None)
Quarter: 2009Q4

REPORT INFORMATION
  Report Type: 
  Country: None (occurrence: None)
  Receive Date: 20091204
  Receipt Date: 20091118
  Transmission Date: 20100525
  Serious: Yes (Other)
  Sender: FDA-Public Use
  Company Number: 2009SA006023

PATIENT
  Age: 31 Year
  Sex: Male

DRUGS (10)
  1. FLUDARABINE PHOSPHATE [Suspect]
     Indication: ACUTE MYELOID LEUKAEMIA
     Dosage: 25 MILLIGRAM(S)/SQUARE METER;DAILY
     Dates: start: 20080101
  2. GEMTUZUMAB OZOGAMICIN          (GEMTUZUMAB OZOGAMICIN) [Suspect]
     Indication: ACUTE MYELOID LEUKAEMIA
     Dosage: 6 MILLIGRAM(S) /SQUARE METER;DAILY;  3 MILLIGRAM(S) /SQUARE METER;DAILY
  3. MELPHALAN              (MELPHALAN) [Suspect]
     Indication: ACUTE MYELOID LEUKAEMIA
     Dosage: 40 MILLIGRAMS) /SQUARE METER;DAILY
     Dates: start: 20080101
  4. ANTINEOPLASTIC AGENTS [Concomitant]
  5. CYCLOSPORINE [Concomitant]
  6. MYCOPHENOLATE MOFETIL [Concomitant]
  7. HEPARIN [Concomitant]
  8. PROSTAGLANDIN E1 [Concomitant]
  9. ANTITHROMBIN III [Concomitant]
  10. BUSULFAN [Concomitant]

REACTIONS (4)
  - FLUID RETENTION [None]
  - HYPERBILIRUBINAEMIA [None]
  - THROMBOCYTOPENIA [None]
  - TRANSAMINASES INCREASED [None]
